FAERS Safety Report 8035488-0 (Version None)
Quarter: 2012Q1

REPORT INFORMATION
  Report Type: 
  Country: None (occurrence: None)
  Receive Date: 20120111
  Receipt Date: 20120102
  Transmission Date: 20120608
  Serious: Yes (Hospitalization)
  Sender: FDA-Public Use
  Company Number: FR-JNJFOC-20120102586

PATIENT
  Sex: Female
  Weight: 62 kg

DRUGS (7)
  1. XARELTO [Suspect]
     Indication: THROMBOSIS PROPHYLAXIS
     Route: 048
     Dates: start: 20111001, end: 20111012
  2. NEXIUM [Concomitant]
  3. PERINDOPRIL ERBUMINE [Concomitant]
  4. AMLODIPINE [Concomitant]
  5. SECTRAL [Concomitant]
  6. XARELTO [Suspect]
     Indication: KNEE ARTHROPLASTY
     Route: 048
     Dates: start: 20111001, end: 20111012
  7. ASPIRIN [Concomitant]

REACTIONS (1)
  - THROMBOCYTOSIS [None]
